FAERS Safety Report 5549241-0 (Version None)
Quarter: 2007Q4

REPORT INFORMATION
  Report Type: 
  Country: None (occurrence: None)
  Receive Date: 20071210
  Receipt Date: 20071204
  Transmission Date: 20080405
  Serious: Yes (Death, Other)
  Sender: FDA-Public Use
  Company Number: 163-21880-07120231

PATIENT
  Age: 72 Year
  Sex: Male

DRUGS (2)
  1. REVLIMID [Suspect]
     Indication: MULTIPLE MYELOMA
     Dosage: 25 MG, DAILY X21 DAYS, ORAL; 15 MG, DAILY X21 DAYS, ORAL
     Route: 048
     Dates: start: 20070921, end: 20071001
  2. REVLIMID [Suspect]
     Indication: MULTIPLE MYELOMA
     Dosage: 25 MG, DAILY X21 DAYS, ORAL; 15 MG, DAILY X21 DAYS, ORAL
     Route: 048
     Dates: start: 20071001, end: 20071001

REACTIONS (1)
  - CARDIAC FAILURE CONGESTIVE [None]
